FAERS Safety Report 6489076-8 (Version None)
Quarter: 2009Q4

REPORT INFORMATION
  Report Type: 
  Country: None (occurrence: None)
  Receive Date: 20091210
  Receipt Date: 20091204
  Transmission Date: 20100525
  Serious: Yes (Other)
  Sender: FDA-Public Use
  Company Number: TR-BAXTER-2009BH018786

PATIENT
  Age: 74 Year
  Sex: Female

DRUGS (1)
  1. DOBUTAMINE HYDROCHLORIDE [Suspect]
     Indication: CARDIAC STRESS TEST
     Route: 065

REACTIONS (1)
  - STRESS CARDIOMYOPATHY [None]
